FAERS Safety Report 10915517 (Version 1)
Quarter: 2015Q1

REPORT INFORMATION
  Report Type: Spontaneous
  Country: US (occurrence: None)
  Receive Date: 20150311
  Receipt Date: 20150311
  Transmission Date: 20150721
  Serious: Yes (Life-Threatening, Hospitalization)
  Sender: FDA-Public Use
  Company Number: None

PATIENT
  Age: 12 Year
  Sex: Female
  Weight: 29.48 kg

DRUGS (1)
  1. ADVIL [Suspect]
     Active Substance: IBUPROFEN
     Indication: PYREXIA
     Dosage: G-TUBE
     Dates: start: 20150308, end: 20150309

REACTIONS (2)
  - Product substitution issue [None]
  - Anaphylactic reaction [None]

NARRATIVE: CASE EVENT DATE: 20150309
